FAERS Safety Report 4425777-0 (Version None)
Quarter: 2004Q3

REPORT INFORMATION
  Report Type: 
  Country: None (occurrence: None)
  Receive Date: 20040810
  Receipt Date: 20040730
  Transmission Date: 20050211
  Serious: Yes (Hospitalization)
  Sender: FDA-Public Use
  Company Number: 139706USA

PATIENT
  Sex: Male

DRUGS (6)
  1. ADRUCIL [Suspect]
     Indication: COLORECTAL CANCER METASTATIC
     Dosage: 804 MILLIGRAM DAILY INTRAVENOUS BOLUS
     Route: 040
     Dates: start: 20040719
  2. OXALIPLATIN [Suspect]
     Indication: COLORECTAL CANCER METASTATIC
     Dosage: 171 MILLIGRAM DAILY INTRAVENOUS (NOS)
     Route: 042
     Dates: start: 20040719
  3. LEUCOVORIN [Suspect]
     Indication: COLORECTAL CANCER METASTATIC
     Dosage: 402 MILLIGRAM DAILY INTRAVENOUS (NOS)
     Route: 042
     Dates: start: 20040719
  4. VICODIN [Concomitant]
  5. DIAZEPAM [Concomitant]
  6. PROTONIX [Concomitant]

REACTIONS (8)
  - ASPARTATE AMINOTRANSFERASE INCREASED [None]
  - BLOOD ALKALINE PHOSPHATASE INCREASED [None]
  - BLOOD BILIRUBIN INCREASED [None]
  - NAUSEA [None]
  - PYREXIA [None]
  - TACHYCARDIA [None]
  - VOMITING [None]
  - WHITE BLOOD CELL COUNT INCREASED [None]
